FAERS Safety Report 24144278 (Version 1)
Quarter: 2024Q3

REPORT INFORMATION
  Report Type: Spontaneous
  Country: GB (occurrence: GB)
  Receive Date: 20240728
  Receipt Date: 20240728
  Transmission Date: 20241016
  Serious: Yes (Other)
  Sender: DEXCEL
  Company Number: None

PATIENT
  Age: 67 Year
  Sex: Female

DRUGS (6)
  1. DATSCAN [Interacting]
     Active Substance: IODINE\IOFLUPANE I-123
     Indication: Parkinsonism
     Dates: start: 202205, end: 202205
  2. VENLAFAXINE [Interacting]
     Active Substance: VENLAFAXINE HYDROCHLORIDE
     Indication: Bipolar disorder
     Dosage: 300MG DAILY
     Dates: start: 20140421, end: 2024
  3. LITHIUM [Concomitant]
     Active Substance: LITHIUM
     Indication: Bipolar disorder
  4. LAMOTRIGINE [Concomitant]
     Active Substance: LAMOTRIGINE
     Indication: Epilepsy
  5. PHENYTOIN [Concomitant]
     Active Substance: PHENYTOIN
  6. QUETIAPINE [Concomitant]
     Active Substance: QUETIAPINE
     Indication: Bipolar disorder

REACTIONS (2)
  - Drug interaction [Not Recovered/Not Resolved]
  - False positive radioisotope investigation result [Unknown]

NARRATIVE: CASE EVENT DATE: 20220501
